FAERS Safety Report 7641757-6 (Version None)
Quarter: 2011Q3

REPORT INFORMATION
  Report Type: 
  Country: None (occurrence: None)
  Receive Date: 20110728
  Receipt Date: 20110713
  Transmission Date: 20111222
  Serious: Yes (Hospitalization, Other)
  Sender: FDA-Public Use
  Company Number: CH-ROCHE-764558

PATIENT
  Sex: Female

DRUGS (1)
  1. PEGASYS [Suspect]
     Indication: HEPATITIS C
     Route: 058
     Dates: start: 20060101

REACTIONS (4)
  - ARTHROPATHY [None]
  - LEG AMPUTATION [None]
  - SEPSIS [None]
  - CARDIAC OPERATION [None]
